FAERS Safety Report 10063327 (Version 6)
Quarter: 2016Q1

REPORT INFORMATION
  Report Type: Report from Study
  Country: US (occurrence: US)
  Receive Date: 20140407
  Receipt Date: 20160324
  Transmission Date: 20160525
  Serious: Yes (Other)
  Sender: FDA-Public Use
  Company Number: US-EXELIXIS-CABO-14004127

PATIENT
  Age: 84 Year
  Sex: Female
  Weight: 66.81 kg

DRUGS (15)
  1. COMETRIQ [Suspect]
     Active Substance: CABOZANTINIB S-MALATE
     Dosage: 40 MG QOD ALTERNATING WITH 20 MG QOD
     Route: 048
     Dates: start: 2016, end: 20160316
  2. FUROSEMIDE. [Concomitant]
     Active Substance: FUROSEMIDE
  3. COMETRIQ [Suspect]
     Active Substance: CABOZANTINIB S-MALATE
     Dosage: 80 MG, SINGLE
     Route: 048
     Dates: start: 20150611, end: 20150611
  4. COMETRIQ [Suspect]
     Active Substance: CABOZANTINIB S-MALATE
     Dosage: 80 MG, QOD
     Route: 048
     Dates: start: 20141209, end: 20150227
  5. COMETRIQ [Suspect]
     Active Substance: CABOZANTINIB S-MALATE
     Dosage: 80 MG, QOD
     Route: 048
     Dates: start: 2015, end: 20150511
  6. COMETRIQ [Suspect]
     Active Substance: CABOZANTINIB S-MALATE
     Dosage: 60 MG QOD, ALTERNATING WITH 20 MG QOD
     Route: 048
     Dates: start: 20150612
  7. COMETRIQ [Suspect]
     Active Substance: CABOZANTINIB S-MALATE
     Indication: THYROID CANCER
     Dosage: 140 MG, QD
     Route: 048
     Dates: start: 20140326, end: 20140329
  8. COMETRIQ [Suspect]
     Active Substance: CABOZANTINIB S-MALATE
     Dosage: 80 MG, QD
     Route: 048
     Dates: start: 20141023, end: 2014
  9. COMETRIQ [Suspect]
     Active Substance: CABOZANTINIB S-MALATE
     Dosage: 140 MG, QD
     Route: 048
     Dates: start: 20140409, end: 20140616
  10. CEPHALEXIN. [Concomitant]
     Active Substance: CEPHALEXIN
  11. ASPIRIN. [Concomitant]
     Active Substance: ASPIRIN
  12. SPIRONOLACTONE. [Concomitant]
     Active Substance: SPIRONOLACTONE
  13. COMETRIQ [Suspect]
     Active Substance: CABOZANTINIB S-MALATE
     Dosage: 40 MG QOD ALTERNATING WITH 20 MG QOD
     Route: 048
     Dates: start: 20150901, end: 20151015
  14. GLIPIZIDE. [Concomitant]
     Active Substance: GLIPIZIDE
  15. LISINOPRIL. [Concomitant]
     Active Substance: LISINOPRIL

REACTIONS (31)
  - Dry mouth [Not Recovered/Not Resolved]
  - Oral mucosal blistering [Not Recovered/Not Resolved]
  - Dry skin [Not Recovered/Not Resolved]
  - Dehydration [Unknown]
  - Gastrooesophageal reflux disease [Unknown]
  - Flatulence [Unknown]
  - Blood magnesium decreased [Not Recovered/Not Resolved]
  - Metastases to lung [Unknown]
  - Blood sodium decreased [Unknown]
  - Blood urine present [Unknown]
  - Neck pain [Unknown]
  - Nervousness [Unknown]
  - Headache [Unknown]
  - Ageusia [Unknown]
  - Asthenia [Not Recovered/Not Resolved]
  - Decreased appetite [Unknown]
  - Metastases to pancreas [Unknown]
  - Dysphonia [Not Recovered/Not Resolved]
  - Alopecia [Unknown]
  - Abdominal pain [Recovered/Resolved]
  - Hypogeusia [Unknown]
  - Muscle spasms [Unknown]
  - Hypertensive crisis [Unknown]
  - Oedema peripheral [Unknown]
  - Dyspnoea [Unknown]
  - Diarrhoea [Not Recovered/Not Resolved]
  - Pruritus [Unknown]
  - Insomnia [Unknown]
  - Pain in jaw [Unknown]
  - Blood potassium decreased [Unknown]
  - Neoplasm [Unknown]

NARRATIVE: CASE EVENT DATE: 2014
